FAERS Safety Report 8126876-2 (Version None)
Quarter: 2012Q1

REPORT INFORMATION
  Report Type: 
  Country: None (occurrence: None)
  Receive Date: 20120210
  Receipt Date: 20120207
  Transmission Date: 20120608
  Serious: No
  Sender: FDA-Public Use
  Company Number: US-PFIZER INC-2012034061

PATIENT
  Sex: Female

DRUGS (4)
  1. XANAX [Suspect]
     Indication: ANXIETY
     Dosage: UNK
  2. ZOLOFT [Suspect]
     Dosage: UNK
  3. NICOTROL [Suspect]
     Dosage: UNK
  4. CHANTIX [Suspect]
     Dosage: UNK

REACTIONS (3)
  - SKIN DISORDER [None]
  - EYE DISORDER [None]
  - PRURITUS [None]
